FAERS Safety Report 14490124 (Version 1)
Quarter: 2018Q1

REPORT INFORMATION
  Report Type: Spontaneous
  Country: US (occurrence: US)
  Receive Date: 20180206
  Receipt Date: 20180206
  Transmission Date: 20180509
  Serious: Yes (Other)
  Sender: FDA-Public Use
  Company Number: US-JNJFOC-20180132330

PATIENT
  Sex: Male

DRUGS (10)
  1. METOPROLOL TARTRATE. [Concomitant]
     Active Substance: METOPROLOL TARTRATE
  2. NIFEDIPINE. [Concomitant]
     Active Substance: NIFEDIPINE
  3. TAMSULOSIN [Concomitant]
     Active Substance: TAMSULOSIN
  4. IMBRUVICA [Suspect]
     Active Substance: IBRUTINIB
     Indication: B-CELL SMALL LYMPHOCYTIC LYMPHOMA
     Route: 048
     Dates: start: 20170405, end: 201710
  5. METAMUCIL [Concomitant]
     Active Substance: PLANTAGO SEED
  6. ASPIRIN. [Concomitant]
     Active Substance: ASPIRIN
  7. VALSARTAN. [Concomitant]
     Active Substance: VALSARTAN
  8. IMBRUVICA [Suspect]
     Active Substance: IBRUTINIB
     Indication: CHRONIC LYMPHOCYTIC LEUKAEMIA
     Route: 048
     Dates: start: 20170405, end: 201710
  9. SENNA ALEXANDRINA EXTRACT [Concomitant]
  10. ROPINIROLE. [Concomitant]
     Active Substance: ROPINIROLE

REACTIONS (1)
  - Bladder cancer [Unknown]

NARRATIVE: CASE EVENT DATE: 2017
